FAERS Safety Report 6336810-3 (Version None)
Quarter: 2009Q3

REPORT INFORMATION
  Report Type: 
  Country: None (occurrence: None)
  Receive Date: 20090901
  Receipt Date: 20090827
  Transmission Date: 20100115
  Serious: Yes (Death)
  Sender: FDA-Public Use
  Company Number: US-ASTRAZENECA-2009SE10280

PATIENT
  Age: 57 Year
  Sex: Male

DRUGS (5)
  1. SEROQUEL [Suspect]
     Indication: SCHIZOPHRENIA, PARANOID TYPE
     Route: 048
     Dates: start: 20070522, end: 20090222
  2. SEROQUEL [Suspect]
     Route: 048
     Dates: start: 20090223
  3. SEROQUEL [Suspect]
     Route: 048
     Dates: start: 20090223
  4. LAMICTAL [Concomitant]
     Route: 065
  5. COGENTIN [Concomitant]
     Route: 065

REACTIONS (1)
  - MYOCARDIAL INFARCTION [None]
